FAERS Safety Report 4471951-7 (Version None)
Quarter: 2004Q4

REPORT INFORMATION
  Report Type: 
  Country: None (occurrence: None)
  Receive Date: 20041007
  Receipt Date: 20040928
  Transmission Date: 20050328
  Serious: Yes (Hospitalization, Disabling, Other)
  Sender: FDA-Public Use
  Company Number: 2004040893

PATIENT
  Age: 61 Year
  Sex: Female
  Weight: 75 kg

DRUGS (6)
  1. LIPITOR [Suspect]
     Indication: HYPERCHOLESTEROLAEMIA
     Dosage: 10 MG (10 MG, 1 IN 1 D, ORAL)
     Route: 048
     Dates: start: 20030206, end: 20030815
  2. METFORMIN HCL [Concomitant]
  3. CANDESARTAN CILEXITIL (CANDESARTAN CILEXITIL) [Concomitant]
  4. ALL OTHER THERAPEUTIC PRODUCTS (ALL OTHER THERAPEUTIC PRODUCTS) [Concomitant]
  5. ESTRADIOL [Concomitant]
  6. THYROXIN (LEVOTHYOXINE SODIUM) [Concomitant]

REACTIONS (18)
  - ANAESTHETIC COMPLICATION [None]
  - BURSITIS [None]
  - CAROTID ARTERY ATHEROMA [None]
  - CONTUSION [None]
  - DIARRHOEA [None]
  - DIFFICULTY IN WALKING [None]
  - MUSCLE ATROPHY [None]
  - MUSCLE CRAMP [None]
  - MUSCLE RUPTURE [None]
  - MYOSITIS [None]
  - NEUROPATHIC PAIN [None]
  - PARAESTHESIA [None]
  - PARESIS [None]
  - PERONEAL NERVE PALSY [None]
  - RED BLOOD CELL SEDIMENTATION RATE INCREASED [None]
  - SENSORY DISTURBANCE [None]
  - STAPHYLOCOCCAL INFECTION [None]
  - SURGICAL PROCEDURE REPEATED [None]
